FAERS Safety Report 4754894-0 (Version None)
Quarter: 2005Q3

REPORT INFORMATION
  Report Type: 
  Country: None (occurrence: None)
  Receive Date: 20050829
  Receipt Date: 20050621
  Transmission Date: 20060218
  Serious: Yes (Hospitalization, Disabling)
  Sender: FDA-Public Use
  Company Number: US-MERCK-0506USA03866

PATIENT
  Age: 49 Year
  Sex: Male
  Weight: 141 kg

DRUGS (17)
  1. VIOXX [Suspect]
     Indication: OSTEOARTHRITIS
     Route: 048
     Dates: start: 19991001, end: 20020101
  2. VIOXX [Suspect]
     Route: 048
     Dates: start: 20020116, end: 20020101
  3. VIOXX [Suspect]
     Route: 048
     Dates: start: 20021228, end: 20040901
  4. VIOXX [Suspect]
     Indication: BACK PAIN
     Route: 048
     Dates: start: 19991001, end: 20020101
  5. VIOXX [Suspect]
     Route: 048
     Dates: start: 20020116, end: 20020101
  6. VIOXX [Suspect]
     Route: 048
     Dates: start: 20021228, end: 20040901
  7. COZAAR [Concomitant]
     Route: 048
     Dates: start: 19971001
  8. LASIX [Concomitant]
     Route: 048
     Dates: start: 19960301
  9. ASPIRIN [Concomitant]
     Route: 048
     Dates: start: 20001101, end: 20041101
  10. PRAVACHOL [Concomitant]
     Route: 048
     Dates: start: 19971001
  11. VICODIN [Concomitant]
     Route: 048
     Dates: start: 19951201
  12. SOMA [Concomitant]
     Route: 048
     Dates: start: 19980701
  13. NITROSTAT [Concomitant]
     Route: 065
  14. POTASSIUM CHLORIDE [Concomitant]
     Route: 048
  15. VITAMINS (UNSPECIFIED) [Concomitant]
     Route: 065
  16. DILTIA XT [Concomitant]
     Route: 048
  17. NICOTINE [Concomitant]
     Route: 065

REACTIONS (13)
  - ACUTE MYOCARDIAL INFARCTION [None]
  - CARDIAC FAILURE CONGESTIVE [None]
  - CARDIAC MURMUR [None]
  - DENTAL EXAMINATION ABNORMAL [None]
  - DERMATITIS CONTACT [None]
  - DYSPNOEA [None]
  - GROIN PAIN [None]
  - HYPERSENSITIVITY [None]
  - PROSTATIC SPECIFIC ANTIGEN INCREASED [None]
  - SACROILIITIS [None]
  - SKIN ULCER [None]
  - VENTRICULAR EXTRASYSTOLES [None]
  - VIRAL INFECTION [None]
